FAERS Safety Report 21770768 (Version 1)
Quarter: 2022Q4

REPORT INFORMATION
  Report Type: Report from Study
  Country: US (occurrence: US)
  Receive Date: 20221223
  Receipt Date: 20221223
  Transmission Date: 20230112
  Serious: No
  Sender: FDA-Public Use
  Company Number: US-ABBVIE-4200839

PATIENT
  Age: 50 Year
  Sex: Female

DRUGS (1)
  1. SKYRIZI [Suspect]
     Active Substance: RISANKIZUMAB-RZAA
     Indication: Psoriasis
     Dosage: WEEK 0, WEEK 4 AND THEN EVERY 12 WEEKS ?FORM STRENGTH: 150 MILLIGRAM
     Route: 058
     Dates: start: 20221025

REACTIONS (9)
  - Upper respiratory tract infection [Unknown]
  - Pain [Unknown]
  - Nasopharyngitis [Unknown]
  - Night sweats [Unknown]
  - Dizziness [Unknown]
  - Throat irritation [Unknown]
  - Decreased appetite [Unknown]
  - Chills [Unknown]
  - Asthenia [Unknown]

NARRATIVE: CASE EVENT DATE: 20221112
